FAERS Safety Report 25760578 (Version 1)
Quarter: 2025Q3

REPORT INFORMATION
  Report Type: Spontaneous
  Country: US (occurrence: US)
  Receive Date: 20250904
  Receipt Date: 20250904
  Transmission Date: 20251021
  Serious: Yes (Other)
  Sender: ASTELLAS
  Company Number: US-ASTELLAS-2025-AER-047897

PATIENT
  Sex: Female

DRUGS (5)
  1. GILTERITINIB [Suspect]
     Active Substance: GILTERITINIB
     Indication: Leukaemia recurrent
     Route: 065
     Dates: start: 202502, end: 2025
  2. GILTERITINIB [Suspect]
     Active Substance: GILTERITINIB
     Route: 065
     Dates: start: 2025
  3. MERCAPTOPURINE [Concomitant]
     Active Substance: MERCAPTOPURINE
     Indication: Leukaemia recurrent
     Route: 065
     Dates: start: 202501
  4. METHOTREXATE [Concomitant]
     Active Substance: METHOTREXATE
     Indication: Leukaemia recurrent
     Route: 065
     Dates: start: 202501
  5. TRETINOIN [Concomitant]
     Active Substance: TRETINOIN
     Indication: Leukaemia recurrent
     Route: 065
     Dates: start: 202501

REACTIONS (3)
  - Hepatotoxicity [Unknown]
  - Product use issue [Unknown]
  - Off label use [Unknown]

NARRATIVE: CASE EVENT DATE: 20250101
